FAERS Safety Report 13013150 (Version 1)
Quarter: 2016Q4

REPORT INFORMATION
  Report Type: Report from Study
  Country: DE (occurrence: DE)
  Receive Date: 20161209
  Receipt Date: 20161209
  Transmission Date: 20170207
  Serious: Yes (Hospitalization)
  Sender: FDA-Public Use
  Company Number: DE-BIOGEN-2016BI00187329

PATIENT
  Age: 38 Year
  Sex: Female
  Weight: 80 kg

DRUGS (2)
  1. PLEGRIDY [Suspect]
     Active Substance: PEGINTERFERON BETA-1A
     Indication: MULTIPLE SCLEROSIS
     Route: 058
     Dates: start: 20160119
  2. PLEGRIDY [Suspect]
     Active Substance: PEGINTERFERON BETA-1A
     Route: 058

REACTIONS (2)
  - Lymphadenopathy [Recovered/Resolved with Sequelae]
  - Pharyngitis [Recovered/Resolved with Sequelae]

NARRATIVE: CASE EVENT DATE: 201601
